FAERS Safety Report 14273700 (Version 1)
Quarter: 2017Q4

REPORT INFORMATION
  Report Type: Spontaneous
  Country: FI (occurrence: FI)
  Receive Date: 20171211
  Receipt Date: 20171211
  Transmission Date: 20180321
  Serious: Yes (Other)
  Sender: FDA-Public Use
  Company Number: FI-OTSUKA-J20106828

PATIENT
  Age: 18 Month

DRUGS (1)
  1. ABILIFY [Suspect]
     Active Substance: ARIPIPRAZOLE
     Indication: PRODUCT USED FOR UNKNOWN INDICATION
     Dosage: UNK
     Route: 064

REACTIONS (4)
  - Irritability [Not Recovered/Not Resolved]
  - Screaming [Unknown]
  - Foetal exposure during pregnancy [Unknown]
  - Sleep disorder [Unknown]
